FAERS Safety Report 8230709-3 (Version None)
Quarter: 2012Q1

REPORT INFORMATION
  Report Type: 
  Country: None (occurrence: None)
  Receive Date: 20120323
  Receipt Date: 20120319
  Transmission Date: 20120608
  Serious: Yes (Death, Hospitalization)
  Sender: FDA-Public Use
  Company Number: GXKR2009DK09073

PATIENT
  Sex: Male

DRUGS (2)
  1. DICLOFENAC SODIUM [Suspect]
     Indication: OSTEOARTHRITIS
     Dosage: UNK
     Route: 048
     Dates: start: 20060501, end: 20080301
  2. 28101273286 DICLON 50 MG ENTEROTABLETTER [Suspect]
     Indication: OSTEOARTHRITIS
     Dates: start: 20060101, end: 20080101

REACTIONS (4)
  - GASTRIC ULCER PERFORATION [None]
  - ABDOMINAL PAIN [None]
  - GASTROINTESTINAL SURGERY [None]
  - DEATH [None]
